FAERS Safety Report 11984094 (Version 3)
Quarter: 2016Q4

REPORT INFORMATION
  Report Type: Report from Study
  Country: CO (occurrence: CO)
  Receive Date: 20160201
  Receipt Date: 20161221
  Transmission Date: 20170206
  Serious: Yes (Other)
  Sender: FDA-Public Use
  Company Number: PHHY2016CO006174

PATIENT
  Age: 64 Year
  Sex: Male
  Weight: 95 kg

DRUGS (3)
  1. LOSARTAN. [Concomitant]
     Active Substance: LOSARTAN
     Indication: TENSION
     Dosage: 25 MG, UNK
     Route: 065
  2. SANDOSTATIN LAR DEPOT [Suspect]
     Active Substance: OCTREOTIDE ACETATE
     Indication: ACROMEGALY
     Dosage: 20 MG, QMO, MONTHLY
     Route: 030
     Dates: start: 20151228, end: 20161206
  3. LOSARTAN. [Concomitant]
     Active Substance: LOSARTAN
     Dosage: 50 MG, BID
     Route: 065

REACTIONS (8)
  - Respiratory arrest [Unknown]
  - Gastrointestinal disorder [Unknown]
  - Pituitary tumour [Unknown]
  - Malaise [Unknown]
  - Hypertension [Unknown]
  - Blood pressure increased [Unknown]
  - Tinnitus [Unknown]
  - Anxiety [Unknown]

NARRATIVE: CASE EVENT DATE: 20160114
